FAERS Safety Report 6369234-3 (Version None)
Quarter: 2009Q3

REPORT INFORMATION
  Report Type: 
  Country: None (occurrence: None)
  Receive Date: 20090916
  Receipt Date: 20090908
  Transmission Date: 20100115
  Serious: Yes (Other)
  Sender: FDA-Public Use
  Company Number: ADR19662009

PATIENT
  Age: 44 Year
  Sex: Female

DRUGS (6)
  1. SERTRALINE HCL [Suspect]
     Dosage: 150 MG ORAL
  2. VENLAFAXINE [Suspect]
     Dosage: 75MG ORAL
     Route: 048
  3. DIAZEPAM [Concomitant]
  4. LORAZEPAM [Concomitant]
  5. MITRAZEPAM [Concomitant]
  6. ZOPICLONE [Concomitant]

REACTIONS (5)
  - ATAXIA [None]
  - COGNITIVE DISORDER [None]
  - COORDINATION ABNORMAL [None]
  - GAIT DISTURBANCE [None]
  - TREMOR [None]
